FAERS Safety Report 6243323-6 (Version None)
Quarter: 2009Q2

REPORT INFORMATION
  Report Type: 
  Country: None (occurrence: None)
  Receive Date: 20090624
  Receipt Date: 20090619
  Transmission Date: 20091009
  Serious: Yes (Death, Hospitalization)
  Sender: FDA-Public Use
  Company Number: PHHY2009BR24763

PATIENT
  Sex: Male

DRUGS (1)
  1. EXELON [Suspect]
     Indication: DEMENTIA
     Dosage: TWICE DAILY
     Route: 048
     Dates: start: 20090401, end: 20090504

REACTIONS (4)
  - DEMENTIA ALZHEIMER'S TYPE [None]
  - FEELING ABNORMAL [None]
  - PULMONARY THROMBOSIS [None]
  - RESPIRATORY FAILURE [None]
